FAERS Safety Report 14465597 (Version 1)
Quarter: 2018Q1

REPORT INFORMATION
  Report Type: Spontaneous
  Country: US (occurrence: US)
  Receive Date: 20180131
  Receipt Date: 20180131
  Transmission Date: 20180509
  Serious: Yes (Other)
  Sender: FDA-Public Use
  Company Number: US-ASTRAZENECA-2018SE11430

PATIENT
  Sex: Female

DRUGS (1)
  1. TAGRISSO [Suspect]
     Active Substance: OSIMERTINIB
     Route: 048
     Dates: start: 201608

REACTIONS (13)
  - Erythema [Unknown]
  - Onychomycosis [Unknown]
  - Rash [Unknown]
  - Nail disorder [Unknown]
  - Psoriasis [Unknown]
  - Hair disorder [Unknown]
  - Pyrexia [Unknown]
  - Sunburn [Unknown]
  - Diarrhoea [Unknown]
  - Lung cancer metastatic [Unknown]
  - Skin wrinkling [Unknown]
  - Dry skin [Unknown]
  - Pruritus [Unknown]
